FAERS Safety Report 19243528 (Version 3)
Quarter: 2021Q2

REPORT INFORMATION
  Report Type: Report from Study
  Country: SE (occurrence: SE)
  Receive Date: 20210511
  Receipt Date: 20210601
  Transmission Date: 20210717
  Serious: Yes (Other)
  Sender: FDA-Public Use
  Company Number: SE-ROCHE-2826061

PATIENT
  Age: 76 Year
  Sex: Male

DRUGS (10)
  1. JANUVIA [Concomitant]
     Active Substance: SITAGLIPTIN PHOSPHATE
  2. LEVOTHYROXIN [Concomitant]
     Active Substance: LEVOTHYROXINE
  3. DESLORATADINE. [Concomitant]
     Active Substance: DESLORATADINE
  4. ZOPIKLON [Concomitant]
     Active Substance: ZOPICLONE
  5. COBIMETINIB. [Suspect]
     Active Substance: COBIMETINIB
     Dosage: FREQUENCY: 1 DAILY FOR 21 DAYS CYCLE; NEW CYCLE STARTS DAY 29
     Route: 065
  6. METFORMIN [Concomitant]
     Active Substance: METFORMIN HYDROCHLORIDE
  7. COBIMETINIB. [Suspect]
     Active Substance: COBIMETINIB
     Indication: NEOPLASM MALIGNANT
     Route: 065
     Dates: start: 20210416, end: 20210423
  8. FINASTERIDE. [Concomitant]
     Active Substance: FINASTERIDE
  9. CANDESARTAN. [Concomitant]
     Active Substance: CANDESARTAN
  10. ATORVASTATIN [Concomitant]
     Active Substance: ATORVASTATIN

REACTIONS (4)
  - Pruritus [Not Recovered/Not Resolved]
  - Rash [Not Recovered/Not Resolved]
  - Diabetes mellitus [Unknown]
  - Pemphigoid [Unknown]

NARRATIVE: CASE EVENT DATE: 20210423
